FAERS Safety Report 12237767 (Version 5)
Quarter: 2018Q1

REPORT INFORMATION
  Report Type: Report from Study
  Country: BR (occurrence: BR)
  Receive Date: 20160405
  Receipt Date: 20180228
  Transmission Date: 20180508
  Serious: Yes (Hospitalization, Other)
  Sender: FDA-Public Use
  Company Number: PHHY2016BR043306

PATIENT
  Sex: Male
  Weight: 69 kg

DRUGS (5)
  1. HYDROXYUREA. [Concomitant]
     Active Substance: HYDROXYUREA
     Indication: PRODUCT USED FOR UNKNOWN INDICATION
     Route: 065
  2. EXJADE [Suspect]
     Active Substance: DEFERASIROX
     Indication: SICKLE CELL ANAEMIA
     Dosage: 500 MG, UNK
     Route: 048
  3. EXJADE [Suspect]
     Active Substance: DEFERASIROX
     Indication: THALASSAEMIA
     Dosage: UNK (1 TABLET OF 500 MG AND AN EDGE (PART) OF ANOTHER OF 500 MG)
     Route: 048
  4. EXJADE [Suspect]
     Active Substance: DEFERASIROX
     Dosage: 750 MG, (1 TABLET OF 500 MG AND 1 TABLET OF 250 MG)
     Route: 048
  5. EXJADE [Suspect]
     Active Substance: DEFERASIROX
     Dosage: 750 MG, (1 TABLET OF 500 MG AND 1 TABLET OF 250 MG)
     Route: 048
     Dates: start: 2016

REACTIONS (14)
  - Penile pain [Unknown]
  - Abdominal pain upper [Unknown]
  - Blood iron increased [Unknown]
  - Pyrexia [Unknown]
  - Vein disorder [Unknown]
  - Hypersomnia [Unknown]
  - Serum ferritin increased [Not Recovered/Not Resolved]
  - Hepatic siderosis [Unknown]
  - Heart rate increased [Unknown]
  - Wrong technique in product usage process [Unknown]
  - Priapism [Not Recovered/Not Resolved]
  - Otorrhoea [Recovering/Resolving]
  - Asthenia [Unknown]
  - Multiple organ dysfunction syndrome [Unknown]
